FAERS Safety Report 5913489-3 (Version None)
Quarter: 2008Q4

REPORT INFORMATION
  Report Type: 
  Country: None (occurrence: None)
  Receive Date: 20081007
  Receipt Date: 20080922
  Transmission Date: 20090506
  Serious: Yes (Hospitalization)
  Sender: FDA-Public Use
  Company Number: 2008BI016080

PATIENT
  Age: 28 Year
  Sex: Female
  Weight: 84 kg

DRUGS (4)
  1. TYSABRI [Suspect]
     Indication: RELAPSING-REMITTING MULTIPLE SCLEROSIS
     Dosage: 300 MG QM IV
     Route: 042
     Dates: start: 20080527, end: 20080601
  2. METHYLPREDNISOLONE 16MG TAB [Concomitant]
  3. . [Concomitant]
  4. . [Concomitant]

REACTIONS (6)
  - ANOREXIA [None]
  - BLOOD BILIRUBIN INCREASED [None]
  - HEPATIC ENZYME ABNORMAL [None]
  - HEPATITIS TOXIC [None]
  - NAUSEA [None]
  - PROTHROMBIN TIME SHORTENED [None]
